FAERS Safety Report 6495183-6 (Version None)
Quarter: 2009Q4

REPORT INFORMATION
  Report Type: 
  Country: None (occurrence: None)
  Receive Date: 20091214
  Receipt Date: 20090511
  Transmission Date: 20100525
  Serious: No
  Sender: FDA-Public Use
  Company Number: US-BRISTOL-MYERS SQUIBB COMPANY-14618847

PATIENT
  Age: 82 Year
  Sex: Male
  Weight: 93 kg

DRUGS (11)
  1. ABILIFY [Suspect]
     Indication: DEPRESSION
  2. CODEINE [Concomitant]
  3. FORADIL [Concomitant]
  4. AMIODARONE HCL [Concomitant]
  5. LISINOPRIL [Concomitant]
  6. WARFARIN SODIUM [Concomitant]
  7. MULTI-VITAMIN [Concomitant]
  8. MIRTAZAPINE [Concomitant]
  9. EFFEXOR [Concomitant]
  10. LIPITOR [Concomitant]
  11. TYLENOL (CAPLET) [Concomitant]

REACTIONS (1)
  - URINE OUTPUT INCREASED [None]
